FAERS Safety Report 4926836-6 (Version None)
Quarter: 2006Q1

REPORT INFORMATION
  Report Type: 
  Country: None (occurrence: None)
  Receive Date: 20060228
  Receipt Date: 20050628
  Transmission Date: 20060701
  Serious: Yes (Hospitalization, Other)
  Sender: FDA-Public Use
  Company Number: US-GLAXOSMITHKLINE-A0564506A

PATIENT
  Sex: Female
  Weight: 113.6 kg

DRUGS (1)
  1. LAMICTAL [Suspect]
     Indication: BIPOLAR DISORDER
     Route: 048
     Dates: start: 20050601, end: 20050601

REACTIONS (7)
  - BLISTER [None]
  - HYPERSENSITIVITY [None]
  - MOUTH ULCERATION [None]
  - OEDEMA PERIPHERAL [None]
  - RASH [None]
  - RESPIRATORY DISORDER [None]
  - SWELLING FACE [None]
